FAERS Safety Report 15808158 (Version 2)
Quarter: 2019Q1

REPORT INFORMATION
  Report Type: Spontaneous
  Country: JP (occurrence: JP)
  Receive Date: 20190110
  Receipt Date: 20190115
  Transmission Date: 20190417
  Serious: Yes (Other)
  Sender: FDA-Public Use
  Company Number: JP-JNJFOC-20160707348

PATIENT
  Sex: Female

DRUGS (3)
  1. DOXIL [Suspect]
     Active Substance: DOXORUBICIN HYDROCHLORIDE
     Indication: OVARIAN CANCER
     Dosage: ON DAY 1 OF A 28 DAY CYCLE
     Route: 042
     Dates: start: 201404, end: 201512
  2. BEVACIZUMAB. [Suspect]
     Active Substance: BEVACIZUMAB
     Indication: OVARIAN CANCER
     Route: 041
     Dates: start: 201404, end: 201512
  3. DOXIL [Suspect]
     Active Substance: DOXORUBICIN HYDROCHLORIDE
     Indication: OVARIAN CANCER
     Dosage: 1 OF A 28 DAY CYCLE
     Route: 042
     Dates: start: 201001

REACTIONS (8)
  - Leukopenia [Unknown]
  - Small intestinal perforation [Unknown]
  - Neutropenia [Unknown]
  - Stomatitis [Unknown]
  - Haematotoxicity [Unknown]
  - Toxicity to various agents [Unknown]
  - Proteinuria [Unknown]
  - Palmar-plantar erythrodysaesthesia syndrome [Unknown]
